FAERS Safety Report 13630265 (Version 1)
Quarter: 2017Q2

REPORT INFORMATION
  Report Type: Spontaneous
  Country: US (occurrence: US)
  Receive Date: 20170531
  Receipt Date: 20170531
  Transmission Date: 20170830
  Serious: No
  Sender: FDA-Public Use
  Company Number: US-ASTELLAS-1291444

PATIENT
  Sex: Male

DRUGS (10)
  1. CYMBALTA [Concomitant]
     Active Substance: DULOXETINE HYDROCHLORIDE
  2. CRESTOR [Concomitant]
     Active Substance: ROSUVASTATIN CALCIUM
  3. OMEPRAZOLE. [Concomitant]
     Active Substance: OMEPRAZOLE
  4. LEXAPRO [Concomitant]
     Active Substance: ESCITALOPRAM OXALATE
  5. GLIMEPIRIDE. [Concomitant]
     Active Substance: GLIMEPIRIDE
  6. NOVOLIN INSULIN [Concomitant]
  7. ASPIRIN. [Concomitant]
     Active Substance: ASPIRIN
  8. MENTAX [Concomitant]
     Active Substance: BUTENAFINE HYDROCHLORIDE
  9. TARCEVA [Suspect]
     Active Substance: ERLOTINIB HYDROCHLORIDE
     Indication: LUNG NEOPLASM MALIGNANT
     Route: 048
     Dates: start: 20130922
  10. GABAPENTIN. [Concomitant]
     Active Substance: GABAPENTIN

REACTIONS (8)
  - Eye irritation [Not Recovered/Not Resolved]
  - Onychoclasis [Unknown]
  - Rash [Not Recovered/Not Resolved]
  - Rash [Unknown]
  - Rash pruritic [Unknown]
  - Diarrhoea [Not Recovered/Not Resolved]
  - Skin fissures [Unknown]
  - Dermatitis acneiform [Unknown]
